FAERS Safety Report 6196563-9 (Version None)
Quarter: 2009Q2

REPORT INFORMATION
  Report Type: 
  Country: None (occurrence: None)
  Receive Date: 20090518
  Receipt Date: 20090514
  Transmission Date: 20091009
  Serious: Yes (Life-Threatening)
  Sender: FDA-Public Use
  Company Number: 2009EU001006

PATIENT
  Age: 16 Month
  Sex: Male

DRUGS (3)
  1. TACROLIMUS [Suspect]
  2. COTRIM [Concomitant]
  3. VALACYCLOVIR [Concomitant]

REACTIONS (4)
  - AGRANULOCYTOSIS [None]
  - ANAEMIA HAEMOLYTIC AUTOIMMUNE [None]
  - CYTOMEGALOVIRUS INFECTION [None]
  - HAEMATOTOXICITY [None]
